FAERS Safety Report 15689160 (Version 1)
Quarter: 2018Q4

REPORT INFORMATION
  Report Type: Spontaneous
  Country: DE (occurrence: DE)
  Receive Date: 20181205
  Receipt Date: 20181205
  Transmission Date: 20190205
  Serious: Yes (Other)
  Sender: FDA-Public Use
  Company Number: DE-SA-2018SA300255

PATIENT
  Age: 68 Year

DRUGS (14)
  1. TAPENTADOL HYDROCHLORIDE [Suspect]
     Active Substance: TAPENTADOL HYDROCHLORIDE
     Indication: TRIGEMINAL NEURALGIA
     Dosage: 500 MG/D
     Route: 065
  2. TAPENTADOL HYDROCHLORIDE [Suspect]
     Active Substance: TAPENTADOL HYDROCHLORIDE
     Dosage: 100-100-200 MG (AFTER 8 MONTHS)
  3. CAPSAICIN. [Suspect]
     Active Substance: CAPSAICIN
     Dosage: 8%
     Route: 065
  4. OXCARBAZEPINE. [Suspect]
     Active Substance: OXCARBAZEPINE
     Dosage: 300 UNK
  5. GABAPENTIN. [Suspect]
     Active Substance: GABAPENTIN
     Indication: TRIGEMINAL NEURALGIA
     Dosage: 1800 MG/D
     Route: 065
  6. AMITRIPTYLINE HYDROCHLORIDE. [Suspect]
     Active Substance: AMITRIPTYLINE HYDROCHLORIDE
     Dosage: 25 UNK
  7. LIDOCAINE HYDROCHLORIDE. [Suspect]
     Active Substance: LIDOCAINE HYDROCHLORIDE
     Indication: TRIGEMINAL NEURALGIA
     Dosage: UNK UNK, UNK
     Route: 061
  8. HYDROMORPHONE [Suspect]
     Active Substance: HYDROMORPHONE
     Indication: TRIGEMINAL NEURALGIA
     Dosage: 8 MG, UNK
  9. OXCARBAZEPINE. [Suspect]
     Active Substance: OXCARBAZEPINE
     Indication: TRIGEMINAL NEURALGIA
     Dosage: 600 MG, UNK,WEEK 8
     Route: 065
  10. AMITRIPTYLINE HYDROCHLORIDE. [Suspect]
     Active Substance: AMITRIPTYLINE HYDROCHLORIDE
     Indication: TRIGEMINAL NEURALGIA
     Dosage: 20 MG, UNK
     Route: 065
  11. GABAPENTIN. [Suspect]
     Active Substance: GABAPENTIN
     Dosage: 600-300-300 MG (WEEK 17)
  12. GABAPENTIN. [Suspect]
     Active Substance: GABAPENTIN
     Dosage: GABAPENTIN 300-300-300
  13. AMITRIPTYLINE HYDROCHLORIDE. [Suspect]
     Active Substance: AMITRIPTYLINE HYDROCHLORIDE
     Dosage: AMITRIPTYLINE 10 DROPS (WEEK 8)
  14. AMBROXOL [Suspect]
     Active Substance: AMBROXOL
     Dosage: 20 % OINTMENT
     Route: 061

REACTIONS (20)
  - Atrial fibrillation [Unknown]
  - Quality of life decreased [Unknown]
  - Hypoaesthesia [Unknown]
  - Nasopharyngitis [Unknown]
  - Liver function test increased [Unknown]
  - Constipation [Unknown]
  - Confusional state [Unknown]
  - Glaucoma [Unknown]
  - Insomnia [Unknown]
  - Fall [Unknown]
  - Drug ineffective [Unknown]
  - Benign prostatic hyperplasia [Unknown]
  - Osteoarthritis [Unknown]
  - Hyperaesthesia [Unknown]
  - Fatigue [Unknown]
  - Sleep apnoea syndrome [Recovered/Resolved]
  - Sleep deficit [Recovered/Resolved]
  - Depression [Unknown]
  - Drug effect incomplete [Unknown]
  - Off label use [Unknown]
